FAERS Safety Report 8020180-9 (Version None)
Quarter: 2012Q1

REPORT INFORMATION
  Report Type: 
  Country: None (occurrence: None)
  Receive Date: 20120103
  Receipt Date: 20111220
  Transmission Date: 20120608
  Serious: Yes (Hospitalization)
  Sender: FDA-Public Use
  Company Number: DE-ELI_LILLY_AND_COMPANY-DE201111007474

PATIENT
  Sex: Male
  Weight: 103 kg

DRUGS (9)
  1. METFORMIN HCL [Concomitant]
     Indication: DIABETES MELLITUS
     Dosage: 1000 MG, BID
     Route: 048
  2. SIMVASTATIN [Concomitant]
     Dosage: 30 MG, EACH EVENING
  3. GLIMEPIRIDE [Concomitant]
     Dosage: 1 MG, EACH MORNING
  4. BYETTA [Suspect]
     Indication: TYPE 2 DIABETES MELLITUS
     Dosage: 5 UG, BID
     Dates: start: 20110725, end: 20110822
  5. BYETTA [Suspect]
     Dosage: 10 UG, UNKNOWN
     Route: 058
     Dates: start: 20110822, end: 20111017
  6. RASILEZ [Concomitant]
     Dosage: 300 MG, EACH MORNING
  7. AMLODIPINE [Concomitant]
     Dosage: 5 MG, BID
  8. TORSEMIDE [Concomitant]
     Dosage: 10 MG, EACH MORNING
  9. RAMIPRIL [Concomitant]
     Dosage: 10 MG, EACH MORNING

REACTIONS (3)
  - BLOOD CREATININE INCREASED [None]
  - HYPERLIPIDAEMIA [None]
  - PANCREATITIS [None]
